FAERS Safety Report 10475493 (Version 1)
Quarter: 2014Q3

REPORT INFORMATION
  Report Type: Spontaneous
  Country: US (occurrence: US)
  Receive Date: 20140925
  Receipt Date: 20140925
  Transmission Date: 20150326
  Serious: Yes (Other)
  Sender: FDA-Public Use
  Company Number: US-BAYER-2014-140058

PATIENT
  Sex: Female

DRUGS (2)
  1. ALKA-SELTZER HEARTBURN PLUS GAS RELIEFCHEWS TROPICAL PUNCH [Suspect]
     Active Substance: CALCIUM CARBONATE\DIMETHICONE
     Indication: DYSPEPSIA
     Dosage: 1 DF, PRN
     Route: 048
     Dates: start: 201408
  2. TRAMADOL [Concomitant]
     Active Substance: TRAMADOL

REACTIONS (1)
  - Procedural haemorrhage [Recovered/Resolved]

NARRATIVE: CASE EVENT DATE: 20140908
